FAERS Safety Report 7581634-2 (Version None)
Quarter: 2011Q2

REPORT INFORMATION
  Report Type: 
  Country: None (occurrence: None)
  Receive Date: 20110629
  Receipt Date: 20110620
  Transmission Date: 20111010
  Serious: Yes (Other)
  Sender: FDA-Public Use
  Company Number: US-US-EMD SERONO, INC.-233522K09USA

PATIENT
  Sex: Male
  Weight: 95 kg

DRUGS (8)
  1. BACLOFEN [Concomitant]
     Indication: MULTIPLE SCLEROSIS
  2. REBIF [Suspect]
     Indication: MULTIPLE SCLEROSIS
     Route: 058
     Dates: start: 20060606, end: 20100209
  3. NEURONTIN [Concomitant]
     Indication: MULTIPLE SCLEROSIS
  4. OXYBUTYNIN [Concomitant]
     Indication: URINARY INCONTINENCE
  5. SIMVASTATIN [Concomitant]
     Indication: BLOOD CHOLESTEROL INCREASED
  6. PRILOSEC [Concomitant]
     Indication: GASTROOESOPHAGEAL REFLUX DISEASE
  7. REBIF [Suspect]
     Route: 058
  8. ZOLOFT [Concomitant]
     Indication: DEPRESSION
     Route: 065
     Dates: start: 20080101

REACTIONS (11)
  - CATARACT [None]
  - FALL [None]
  - INJECTION SITE ERYTHEMA [None]
  - INJECTION SITE HAEMATOMA [None]
  - INJECTION SITE REACTION [None]
  - PAIN [None]
  - GASTROOESOPHAGEAL REFLUX DISEASE [None]
  - SLEEP APNOEA SYNDROME [None]
  - ARTHRALGIA [None]
  - SOMNOLENCE [None]
  - NASAL SEPTUM DEVIATION [None]
